FAERS Safety Report 21553705 (Version 2)
Quarter: 2022Q4

REPORT INFORMATION
  Report Type: Spontaneous
  Country: ZA (occurrence: ZA)
  Receive Date: 20221104
  Receipt Date: 20221118
  Transmission Date: 20230113
  Serious: Yes (Death)
  Sender: FDA-Public Use
  Company Number: ZA-NEBO-PC009291

PATIENT
  Age: 32 Year
  Sex: Female

DRUGS (2)
  1. IRON ISOMALTOSIDE 1000 [Suspect]
     Active Substance: IRON ISOMALTOSIDE 1000
     Indication: Iron deficiency
     Dosage: IN TOTAL
     Route: 050
     Dates: start: 20221021, end: 20221021
  2. MIRCERA [Suspect]
     Active Substance: METHOXY POLYETHYLENE GLYCOL-EPOETIN BETA
     Route: 050

REACTIONS (4)
  - Acute kidney injury [Fatal]
  - Haemolysis [Fatal]
  - Methaemoglobinaemia [Fatal]
  - Skin discolouration [Unknown]

NARRATIVE: CASE EVENT DATE: 20221021
